FAERS Safety Report 23877739 (Version 2)
Quarter: 2024Q3

REPORT INFORMATION
  Report Type: Spontaneous
  Country: US (occurrence: US)
  Receive Date: 20240521
  Receipt Date: 20240820
  Transmission Date: 20241016
  Serious: No
  Sender: BRISTOL MYERS SQUIBB
  Company Number: US-BRISTOL-MYERS SQUIBB COMPANY-2024-076480

PATIENT
  Age: 68 Year
  Sex: Female

DRUGS (2)
  1. REBLOZYL [Suspect]
     Active Substance: LUSPATERCEPT-AAMT
     Indication: Product used for unknown indication
     Dosage: FREQUENCY: INJECT 75MG SUBCUTANEOUSLY EVERY 21 DAYS
     Route: 058
  2. REBLOZYL [Suspect]
     Active Substance: LUSPATERCEPT-AAMT
     Dosage: DOSE : INJECT 100MG; FREQUENCY : SUBCUTANEOUSLY EVERY 21 DAYS
     Route: 058

REACTIONS (1)
  - Hypertension [Unknown]
